FAERS Safety Report 6760862-X (Version None)
Quarter: 2010Q2

REPORT INFORMATION
  Report Type: 
  Country: None (occurrence: None)
  Receive Date: 20100608
  Receipt Date: 20100529
  Transmission Date: 20101027
  Serious: Yes (Hospitalization)
  Sender: FDA-Public Use
  Company Number: PHHY2010VE34908

PATIENT
  Sex: Female

DRUGS (3)
  1. DIOVAN [Suspect]
     Indication: HYPERTENSION
     Dosage: 80 MG, UNK
     Dates: start: 20050101
  2. TRILEPTAL [Concomitant]
     Dosage: 300 MG, BID
     Dates: start: 20060101
  3. NEURONTIN [Concomitant]
     Dosage: UNK
     Dates: start: 20080101

REACTIONS (4)
  - BRAIN NEOPLASM [None]
  - CEREBROVASCULAR ACCIDENT [None]
  - CONVULSION [None]
  - SURGERY [None]
